FAERS Safety Report 5615534-1 (Version None)
Quarter: 2008Q1

REPORT INFORMATION
  Report Type: 
  Country: None (occurrence: None)
  Receive Date: 20080204
  Receipt Date: 20080204
  Transmission Date: 20080703
  Serious: No
  Sender: FDA-Public Use
  Company Number: None

PATIENT
  Age: 26 Year
  Sex: Female
  Weight: 60.3 kg

DRUGS (1)
  1. DIPHENHYDRAMINE HCL [Suspect]
     Dosage: 25MG X2 DOSES IV BOLUS
     Route: 040

REACTIONS (2)
  - NO THERAPEUTIC RESPONSE [None]
  - PHARMACEUTICAL PRODUCT COMPLAINT [None]
